FAERS Safety Report 13399519 (Version 1)
Quarter: 2017Q2

REPORT INFORMATION
  Report Type: Spontaneous
  Country: US (occurrence: US)
  Receive Date: 20170404
  Receipt Date: 20170404
  Transmission Date: 20170830
  Serious: Yes (Other)
  Sender: FDA-Public Use
  Company Number: US-INDOCO-000021

PATIENT
  Sex: Male
  Weight: 113.4 kg

DRUGS (18)
  1. ALLOPURINOL. [Suspect]
     Active Substance: ALLOPURINOL
     Indication: GOUT
     Dosage: ALLOPURINOL TABLETS 100 MG
     Dates: start: 20150517
  2. LEVOTHYROXINE. [Concomitant]
     Active Substance: LEVOTHYROXINE
  3. NYTROSTAT [Concomitant]
  4. LOSARTAN. [Concomitant]
     Active Substance: LOSARTAN
  5. MILK THISTLE COMPLEX [Concomitant]
  6. ACETYLSALICYLIC ACID [Concomitant]
     Active Substance: ASPIRIN
     Dosage: WITH LEVOTHYROXIN IN THE MORNING
  7. SPIRONOLACTONE. [Concomitant]
     Active Substance: SPIRONOLACTONE
  8. HYDROCODONE BITARTRATE/PARACETAMOL [Concomitant]
     Indication: PAIN
  9. CARVEDILOL/CARVEDILOL HYDROCHLODRIDE [Concomitant]
  10. PLAVIX [Concomitant]
     Active Substance: CLOPIDOGREL BISULFATE
  11. LORAZEPAM. [Concomitant]
     Active Substance: LORAZEPAM
  12. INGENUS^ ALLOPURINOL [Suspect]
     Active Substance: ALLOPURINOL
     Indication: GOUT
     Dosage: ALLOPURINOL TABLETS 100 MG
     Dates: start: 20170309
  13. COLCHICINE. [Concomitant]
     Active Substance: COLCHICINE
     Indication: GOUT
  14. COLECALCIFEROL [Concomitant]
     Active Substance: CHOLECALCIFEROL
     Dosage: VITAMIN D3 COMPLEX
  15. FISH OIL [Concomitant]
     Active Substance: FISH OIL
  16. ATORVASTATIN [Concomitant]
     Active Substance: ATORVASTATIN
  17. SENNA ALEXANDRINA [Concomitant]
     Active Substance: SENNA LEAF
  18. CALCIUM PANTOTHENATE/NICOTINAMIDE/PYRIDOXINE HYDROCHLORIDE/RIBOFLAVIN/THIAMINE HYDROCHLORIDE [Concomitant]

REACTIONS (1)
  - Coeliac disease [Unknown]
